FAERS Safety Report 10386072 (Version 1)
Quarter: 2014Q1

REPORT INFORMATION
  Report Type: Spontaneous
  Country: US (occurrence: None)
  Receive Date: 20140306
  Receipt Date: 20140306
  Transmission Date: 20141002
  Serious: Yes (Hospitalization, Other)
  Sender: FDA-Public Use
  Company Number: 163-21880-13063782

PATIENT
  Age: 76 Year
  Sex: Female

DRUGS (1)
  1. REVLIMID ( LENALIDOMIDE) ( 25 MILLIGRAM, CAPSULES) [Suspect]
     Indication: PLASMA CELL MYELOMA
     Dosage: 25MG, 1 IN 2 D, PO
     Route: 048
     Dates: start: 201010, end: 20130605

REACTIONS (4)
  - Dehydration [None]
  - Urinary tract infection [None]
  - Pulmonary embolism [None]
  - Fall [None]
